FAERS Safety Report 15476433 (Version 3)
Quarter: 2019Q1

REPORT INFORMATION
  Report Type: Report from Study
  Country: US (occurrence: US)
  Receive Date: 20181009
  Receipt Date: 20190304
  Transmission Date: 20190417
  Serious: Yes (Other)
  Sender: FDA-Public Use
  Company Number: PHEH2018US041136

PATIENT
  Age: 47 Year
  Sex: Female
  Weight: 85.53 kg

DRUGS (2)
  1. GILENYA [Suspect]
     Active Substance: FINGOLIMOD HYDROCHLORIDE
     Indication: MULTIPLE SCLEROSIS
     Dosage: 0.5 MG, QD
     Route: 048
     Dates: start: 201711
  2. GILENYA [Suspect]
     Active Substance: FINGOLIMOD HYDROCHLORIDE
     Dosage: 0.5 MG, QW3 (ONCE DAILY IN MONDAY, WEDNESDAY, FRIDAY)
     Route: 048
     Dates: start: 201808, end: 20181218

REACTIONS (7)
  - Limb discomfort [Unknown]
  - Pain in extremity [Unknown]
  - Prescribed underdose [Unknown]
  - Lymphopenia [Unknown]
  - Leukopenia [Unknown]
  - Neutropenia [Unknown]
  - Liver function test decreased [Unknown]

NARRATIVE: CASE EVENT DATE: 201801
